FAERS Safety Report 12619105 (Version 3)
Quarter: 2016Q3

REPORT INFORMATION
  Report Type: Report from Study
  Country: CA (occurrence: CA)
  Receive Date: 20160803
  Receipt Date: 20160928
  Transmission Date: 20161109
  Serious: Yes (Hospitalization)
  Sender: FDA-Public Use
  Company Number: CA-TAKEDA-2016TUS013132

PATIENT
  Age: 25 Year
  Sex: Female

DRUGS (3)
  1. VEDOLIZUMAB [Suspect]
     Active Substance: VEDOLIZUMAB
     Indication: CROHN^S DISEASE
     Dosage: 300 MG, UNK
     Route: 042
     Dates: start: 20160415
  2. PENTASA [Concomitant]
     Active Substance: MESALAMINE
     Dosage: UNK,UNK, QD
     Dates: start: 2013
  3. URSODIOL. [Concomitant]
     Active Substance: URSODIOL
     Dosage: UNK, UNK, QD
     Dates: start: 201603

REACTIONS (2)
  - Heart rate increased [Unknown]
  - Abdominal pain [Unknown]

NARRATIVE: CASE EVENT DATE: 201606
